FAERS Safety Report 20346784 (Version 1)
Quarter: 2022Q1

REPORT INFORMATION
  Report Type: Spontaneous
  Country: US (occurrence: None)
  Receive Date: 20220114
  Receipt Date: 20220114
  Transmission Date: 20220424
  Serious: Yes (Other)
  Sender: FDA-Public Use
  Company Number: None

PATIENT
  Age: 57 Year
  Sex: Female
  Weight: 90.3 kg

DRUGS (2)
  1. ABRAXANE [Suspect]
     Active Substance: PACLITAXEL
     Indication: Lung adenocarcinoma stage IV
     Dosage: FREQUENCY : WEEKLY;?
     Route: 042
     Dates: start: 20211124
  2. ABRAXANE [Suspect]
     Active Substance: PACLITAXEL
     Indication: Metastases to bone

REACTIONS (7)
  - Chest pain [None]
  - Dyspnoea [None]
  - Throat irritation [None]
  - Pharyngeal swelling [None]
  - Oxygen saturation decreased [None]
  - Blood pressure increased [None]
  - Infusion related reaction [None]

NARRATIVE: CASE EVENT DATE: 20220112
